FAERS Safety Report 5526878-6 (Version None)
Quarter: 2007Q4

REPORT INFORMATION
  Report Type: 
  Country: None (occurrence: None)
  Receive Date: 20071120
  Receipt Date: 20061214
  Transmission Date: 20080405
  Serious: Yes (Other)
  Sender: FDA-Public Use
  Company Number: 2006144059

PATIENT
  Age: 85 Year
  Sex: Male
  Weight: 68.0396 kg

DRUGS (9)
  1. TIKOSYN [Suspect]
     Indication: ATRIAL FIBRILLATION
     Dosage: 500 MCG (250 MCG, 2 IN 1 D)
     Dates: start: 20061110
  2. ATENOLOL [Concomitant]
  3. HYTRIN [Concomitant]
  4. QUESTRAN [Concomitant]
  5. PROSCAR [Concomitant]
  6. MYSOLINE [Concomitant]
  7. COUMADIN [Concomitant]
  8. CLONAZEPAM [Concomitant]
  9. NIFEDIPINE [Concomitant]

REACTIONS (6)
  - ATRIAL FIBRILLATION [None]
  - BLOOD PRESSURE DIASTOLIC INCREASED [None]
  - DIZZINESS [None]
  - GAIT DISTURBANCE [None]
  - HEADACHE [None]
  - URINE OUTPUT DECREASED [None]
